FAERS Safety Report 20605550 (Version 1)
Quarter: 2022Q1

REPORT INFORMATION
  Report Type: Spontaneous
  Country: US (occurrence: US)
  Receive Date: 20220317
  Receipt Date: 20220317
  Transmission Date: 20220424
  Serious: No
  Sender: FDA-Public Use
  Company Number: US-EIGER BIOPHARMACEUTICALS-EIG-2021-000023

PATIENT

DRUGS (2)
  1. ZOKINVY [Suspect]
     Active Substance: LONAFARNIB
     Indication: Progeria
     Dosage: 175 MG, TWO 50 MG CAPSULES AT BREAKFAST AND ONE 75 CAPSULE AT DINNER
     Dates: start: 20210517
  2. ZOKINVY [Suspect]
     Active Substance: LONAFARNIB
     Dosage: 100 MG, TWO 50 MG CAPSULES
     Dates: start: 20210518

REACTIONS (5)
  - Product dose omission issue [Not Recovered/Not Resolved]
  - Nasal congestion [Not Recovered/Not Resolved]
  - Diarrhoea [Not Recovered/Not Resolved]
  - Malaise [Not Recovered/Not Resolved]
  - Vomiting [Not Recovered/Not Resolved]
